FAERS Safety Report 20987676 (Version 3)
Quarter: 2022Q3

REPORT INFORMATION
  Report Type: Report from Study
  Country: DK (occurrence: DK)
  Receive Date: 20220621
  Receipt Date: 20220829
  Transmission Date: 20221027
  Serious: Yes (Hospitalization)
  Sender: FDA-Public Use
  Company Number: DK-NOVARTISPH-NVSC2022DK116689

PATIENT
  Age: 64 Year
  Sex: Female
  Weight: 89 kg

DRUGS (13)
  1. INVESTIGATIONAL PRODUCT [Suspect]
     Active Substance: INVESTIGATIONAL PRODUCT
     Indication: Cardiovascular disorder
     Dosage: CODE NOT BROKEN
     Route: 058
     Dates: start: 20210302
  2. PLACEBO [Suspect]
     Active Substance: UNSPECIFIED INGREDIENT
     Indication: Cardiovascular disorder
     Dosage: CODE NOT BROKEN
     Route: 058
     Dates: start: 20210302
  3. PELACARSEN [Suspect]
     Active Substance: PELACARSEN
     Indication: Cardiovascular disorder
     Dosage: CODE NOT BROKEN
     Route: 058
     Dates: start: 20210302
  4. MORPHINE [Suspect]
     Active Substance: MORPHINE
     Indication: Nephrolithiasis
     Dosage: UNK
     Route: 065
     Dates: start: 20220228, end: 20220519
  5. ASPIRIN [Concomitant]
     Active Substance: ASPIRIN
     Indication: Cardiovascular disorder
     Dosage: UNK
     Route: 065
     Dates: start: 20190524
  6. SELEXID [Concomitant]
     Indication: Nephrolithiasis
     Dosage: UNK
     Route: 065
     Dates: start: 20220228, end: 20220306
  7. METOPROLOL [Concomitant]
     Active Substance: METOPROLOL
     Indication: Cardiovascular disorder
     Dosage: UNK
     Route: 065
     Dates: start: 20200806
  8. METOPROLOL [Concomitant]
     Active Substance: METOPROLOL
     Indication: Percutaneous coronary intervention
  9. LOSARTAN [Concomitant]
     Active Substance: LOSARTAN
     Indication: Hypertension
     Dosage: UNK
     Route: 065
     Dates: start: 20201203
  10. OMEPRAZOLE [Concomitant]
     Active Substance: OMEPRAZOLE
     Indication: Gastrooesophageal reflux disease
     Dosage: UNK
     Route: 065
     Dates: start: 20151207
  11. ESTRADIOL [Concomitant]
     Active Substance: ESTRADIOL
     Indication: Oestradiol decreased
     Dosage: UNK
     Route: 065
     Dates: start: 20210526
  12. ATORVASTATIN [Concomitant]
     Active Substance: ATORVASTATIN
     Indication: Dyslipidaemia
     Dosage: UNK
     Route: 065
     Dates: start: 20210609
  13. ATORVASTATIN [Concomitant]
     Active Substance: ATORVASTATIN
     Indication: Hyperlipidaemia

REACTIONS (1)
  - Abdominal pain [Recovered/Resolved]

NARRATIVE: CASE EVENT DATE: 20220303
